FAERS Safety Report 12712476 (Version 1)
Quarter: 2016Q3

REPORT INFORMATION
  Report Type: Spontaneous
  Country: IT (occurrence: IT)
  Receive Date: 20160902
  Receipt Date: 20160902
  Transmission Date: 20161109
  Serious: Yes (Hospitalization)
  Sender: FDA-Public Use
  Company Number: IT-BAYER-2016-164206

PATIENT
  Age: 85 Year
  Sex: Male

DRUGS (13)
  1. ALLOPURINOL. [Suspect]
     Active Substance: ALLOPURINOL
     Dosage: DAILY DOSE 150 MG
     Route: 048
     Dates: start: 20160811, end: 20160813
  2. ENTUMIN [Concomitant]
     Active Substance: CLOTHIAPINE
     Dosage: DAILY DOSE 10 GTT
     Route: 048
  3. LASIX [Concomitant]
     Active Substance: FUROSEMIDE
     Dosage: DAILY DOSE 25 MG
     Route: 048
  4. ACETYLSALICYLIC ACID [Concomitant]
     Active Substance: ASPIRIN
     Dosage: DAILY DOSE 100 MG
     Route: 048
     Dates: start: 20101110
  5. TAREG [Concomitant]
     Active Substance: VALSARTAN
     Dosage: DAILY DOSE 160 MG
     Route: 048
     Dates: start: 20101110
  6. CIPROXIN 500 MG FILM-COATED TABLETS [Suspect]
     Active Substance: CIPROFLOXACIN
     Indication: GENITOURINARY TRACT INFECTION
     Dosage: DAILY DOSE 1 G
     Route: 048
     Dates: start: 20160811, end: 20160812
  7. FOLACID [Concomitant]
     Dosage: DAILY DOSE 5 MG
     Route: 048
  8. AMLODIPINE [Concomitant]
     Active Substance: AMLODIPINE BESYLATE
     Dosage: DAILY DOSE 5 MG
     Route: 048
  9. CALCIUM SANDOZ [CALCIUM GLUCONATE] [Concomitant]
     Dosage: DAILY DOSE 500 MG
     Route: 048
  10. CONTRAMAL [Concomitant]
     Active Substance: TRAMADOL HYDROCHLORIDE
     Dosage: DAILY DOSE 5 GTT
     Route: 048
  11. KAYEXALATE [Concomitant]
     Active Substance: SODIUM POLYSTYRENE SULFONATE
     Dosage: DAILY DOSE 1 DF
     Route: 048
     Dates: start: 20101110
  12. NORMASE [Concomitant]
     Dosage: DAILY DOSE 2 DF
     Route: 048
  13. PANTORC [Concomitant]
     Active Substance: PANTOPRAZOLE SODIUM
     Dosage: DAILY DOSE 20 MG
     Route: 048

REACTIONS (5)
  - Drug hypersensitivity [Unknown]
  - Skin reaction [Unknown]
  - Blister rupture [Unknown]
  - Rash vesicular [Unknown]
  - Inflammation [Unknown]

NARRATIVE: CASE EVENT DATE: 20160813
